FAERS Safety Report 10516640 (Version 1)
Quarter: 2014Q4

REPORT INFORMATION
  Report Type: Spontaneous
  Country: US (occurrence: None)
  Receive Date: 20141003
  Receipt Date: 20141003
  Transmission Date: 20150528
  Serious: Yes (Hospitalization)
  Sender: FDA-Public Use
  Company Number: 1374209

PATIENT
  Age: 24 Year
  Sex: Female

DRUGS (3)
  1. PEGASYS [Suspect]
     Active Substance: PEGINTERFERON ALFA-2A
     Indication: HEPATITIS C
     Dosage: 1 IN 1 WK
     Route: 058
     Dates: start: 20140226
  2. ADDERALL XR (DEXTROAMPHETAMINE SACCHARATE, DEXAMFETAMINE SULFATE) [Concomitant]
  3. ZANTAC [Concomitant]
     Active Substance: RANITIDINE HYDROCHLORIDE

REACTIONS (2)
  - Loss of consciousness [None]
  - Dizziness [None]
